FAERS Safety Report 21613676 (Version 1)
Quarter: 2022Q4

REPORT INFORMATION
  Report Type: Report from Study
  Country: IT (occurrence: IT)
  Receive Date: 20221118
  Receipt Date: 20221118
  Transmission Date: 20230113
  Serious: Yes (Other)
  Sender: FDA-Public Use
  Company Number: None

PATIENT

DRUGS (16)
  1. THIOGUANINE ANHYDROUS [Suspect]
     Active Substance: THIOGUANINE ANHYDROUS
     Indication: Non-Hodgkin^s lymphoma
     Dosage: 114 MG, QD
     Route: 048
     Dates: start: 20220822, end: 20220902
  2. PURINETHOL [Suspect]
     Active Substance: MERCAPTOPURINE
     Indication: Non-Hodgkin^s lymphoma
     Dosage: 50 MG, QD (50 MG/DIE)
     Route: 048
     Dates: start: 20220914
  3. CYCLOPHOSPHAMIDE [Suspect]
     Active Substance: CYCLOPHOSPHAMIDE
     Indication: Non-Hodgkin^s lymphoma
     Dosage: 1950 MG (ENDOXAN BAXTER)
     Route: 042
     Dates: start: 20220822, end: 20220822
  4. VINCRISTINE [Suspect]
     Active Substance: VINCRISTINE
     Indication: Non-Hodgkin^s lymphoma
     Dosage: 2 MG, QD
     Route: 040
     Dates: start: 20220725
  5. VINCRISTINE [Suspect]
     Active Substance: VINCRISTINE
     Dosage: 2 MG, QD
     Route: 040
     Dates: start: 20220801
  6. VINCRISTINE [Suspect]
     Active Substance: VINCRISTINE
     Dosage: 2 MG, QD
     Route: 040
     Dates: start: 20220808
  7. VINCRISTINE [Suspect]
     Active Substance: VINCRISTINE
     Dosage: 2 MG, QD
     Route: 040
     Dates: start: 20220816
  8. METHOTREXATE (METHOTREXATE SODIUM) [Suspect]
     Active Substance: METHOTREXATE SODIUM
     Indication: Non-Hodgkin^s lymphoma
     Dosage: 20 MG, QD
     Route: 048
     Dates: start: 20220914
  9. METHOTREXATE (METHOTREXATE SODIUM) [Suspect]
     Active Substance: METHOTREXATE SODIUM
     Indication: Non-Hodgkin^s lymphoma
     Dosage: 12 MG, QD
     Route: 037
     Dates: start: 20220824, end: 20220831
  10. CYTARABINE [Suspect]
     Active Substance: CYTARABINE
     Indication: Non-Hodgkin^s lymphoma
     Dosage: 148 MG, QD
     Route: 040
     Dates: start: 20220824, end: 20220827
  11. CYTARABINE [Suspect]
     Active Substance: CYTARABINE
     Dosage: 148 MG, QD
     Route: 040
     Dates: start: 20220830, end: 20220902
  12. ONCASPAR [Suspect]
     Active Substance: PEGASPARGASE
     Indication: Non-Hodgkin^s lymphoma
     Dosage: 3150 MG
     Route: 042
     Dates: start: 20220725, end: 20220725
  13. DECADRON [Concomitant]
     Active Substance: DEXAMETHASONE
     Indication: Product used for unknown indication
     Dosage: 18 MG, QD
     Route: 048
     Dates: start: 20220718, end: 20220808
  14. DECADRON [Concomitant]
     Active Substance: DEXAMETHASONE
     Dosage: 229 MG, QD
     Route: 048
     Dates: start: 20220808, end: 20220811
  15. DECADRON [Concomitant]
     Active Substance: DEXAMETHASONE
     Dosage: 224.5 MG, QD
     Route: 048
     Dates: start: 20220712, end: 20220814
  16. DECADRON [Concomitant]
     Active Substance: DEXAMETHASONE
     Dosage: 222.25 MG, QD
     Route: 048
     Dates: start: 20220715, end: 20220817

REACTIONS (4)
  - Off label use [Unknown]
  - Hyperbilirubinaemia [Recovered/Resolved]
  - Leukopenia [Recovered/Resolved]
  - Anaemia [Recovered/Resolved]

NARRATIVE: CASE EVENT DATE: 20220822
